FAERS Safety Report 8492947-4 (Version None)
Quarter: 2012Q3

REPORT INFORMATION
  Report Type: 
  Country: None (occurrence: None)
  Receive Date: 20120706
  Receipt Date: 20120626
  Transmission Date: 20120928
  Serious: Yes (Other)
  Sender: FDA-Public Use
  Company Number: NL-GLAXOSMITHKLINE-B0807065A

PATIENT
  Sex: Female

DRUGS (1)
  1. FLUTICASONE PROPIONATE [Suspect]
     Indication: SEASONAL ALLERGY
     Dosage: 50MCG TWICE PER DAY
     Route: 045
     Dates: start: 20110301, end: 20120604

REACTIONS (2)
  - AGEUSIA [None]
  - ANOSMIA [None]
